FAERS Safety Report 11951018 (Version 1)
Quarter: 2016Q1

REPORT INFORMATION
  Report Type: Spontaneous
  Country: US (occurrence: US)
  Receive Date: 20160126
  Receipt Date: 20160126
  Transmission Date: 20160526
  Serious: No
  Sender: FDA-Public Use
  Company Number: US-AMGEN-USASP2016005458

PATIENT
  Age: 55 Year
  Sex: Female

DRUGS (2)
  1. ENBREL [Suspect]
     Active Substance: ETANERCEPT
     Indication: PSORIATIC ARTHROPATHY
  2. ENBREL [Suspect]
     Active Substance: ETANERCEPT
     Indication: PSORIASIS
     Dosage: 50MG TWICE WEEKLY
     Route: 065
     Dates: start: 2014

REACTIONS (9)
  - Incorrect product storage [Unknown]
  - Memory impairment [Unknown]
  - Confusional state [Unknown]
  - Ankle fracture [Unknown]
  - Inflammation [Unknown]
  - Feeling abnormal [Unknown]
  - Dysstasia [Unknown]
  - Pain [Unknown]
  - Psoriasis [Unknown]

NARRATIVE: CASE EVENT DATE: 2015
